FAERS Safety Report 8442803 (Version 3)
Quarter: 2013Q1

REPORT INFORMATION
  Report Type: Spontaneous
  Country: US (occurrence: US)
  Receive Date: 20120306
  Receipt Date: 20130301
  Transmission Date: 20140127
  Serious: Yes (Other)
  Sender: FDA-Public Use
  Company Number: US-PFIZER INC-2012055943

PATIENT
  Age: 78 Year
  Sex: Female
  Weight: 68 kg

DRUGS (6)
  1. PREMARIN [Suspect]
     Indication: HORMONE REPLACEMENT THERAPY
     Dosage: 1.25 MG, 2X/DAY
     Route: 048
     Dates: start: 1982
  2. PREMARIN [Suspect]
     Dosage: 0.625 MG, 2X/DAY
     Route: 048
     Dates: start: 1982
  3. PREMARIN [Suspect]
     Dosage: 2.5 MG, DAILY
     Route: 048
  4. PREMARIN [Suspect]
     Dosage: 1.25 MG, DAILY
     Route: 048
  5. LIPITOR [Concomitant]
     Dosage: UNK
  6. CRESTOR [Concomitant]
     Dosage: UNK

REACTIONS (2)
  - Chondropathy [Unknown]
  - Arthralgia [Unknown]
